FAERS Safety Report 19965643 (Version 3)
Quarter: 2022Q1

REPORT INFORMATION
  Report Type: Spontaneous
  Country: US (occurrence: US)
  Receive Date: 20211018
  Receipt Date: 20220119
  Transmission Date: 20220423
  Serious: No
  Sender: FDA-Public Use
  Company Number: US-PFIZER INC-2021469528

PATIENT
  Age: 80 Year
  Sex: Female
  Weight: 61.23 kg

DRUGS (2)
  1. PREMARIN [Suspect]
     Active Substance: ESTROGENS, CONJUGATED
     Indication: Malignant neoplasm progression
     Dosage: 0.3 MG, 1X/DAY (0.3MG TABLET BY MOUTH ONCE DAILY)
     Route: 048
     Dates: start: 1982
  2. PREMARIN [Suspect]
     Active Substance: ESTROGENS, CONJUGATED
     Indication: Hormone replacement therapy

REACTIONS (2)
  - COVID-19 [Unknown]
  - Panic reaction [Unknown]
